FAERS Safety Report 16850288 (Version 1)
Quarter: 2019Q3

REPORT INFORMATION
  Report Type: Spontaneous
  Country: ES (occurrence: ES)
  Receive Date: 20190925
  Receipt Date: 20190925
  Transmission Date: 20191005
  Serious: Yes (Hospitalization)
  Sender: FDA-Public Use
  Company Number: ES-ASTRAZENECA-2019SF35644

PATIENT
  Age: 59 Year
  Sex: Male
  Weight: 99.3 kg

DRUGS (9)
  1. OMEPRAZOL [Concomitant]
     Active Substance: OMEPRAZOLE
     Route: 048
     Dates: start: 20181210
  2. METFORMINA + VILDAGLIPTINA [Concomitant]
     Active Substance: METFORMIN HYDROCHLORIDE\VILDAGLIPTIN
     Indication: TYPE 2 DIABETES MELLITUS
     Route: 048
     Dates: start: 20171027
  3. ACFOL [Concomitant]
     Active Substance: FOLIC ACID
     Route: 048
     Dates: start: 20190528
  4. FORXIGA [Suspect]
     Active Substance: DAPAGLIFLOZIN
     Indication: TYPE 2 DIABETES MELLITUS
     Route: 048
     Dates: start: 20180807
  5. SIMVASTATINA MABO [Concomitant]
     Route: 048
     Dates: start: 20160307
  6. VALSARTAN + HIDROCLOROTIAZIDA [Concomitant]
     Active Substance: HYDROCHLOROTHIAZIDE\VALSARTAN
     Dosage: (160/25) MG/28, ONE DOSAGE FORM DAILY
     Route: 048
     Dates: start: 20171221
  7. ACOXXEL [Concomitant]
     Active Substance: ETORICOXIB
     Route: 048
     Dates: start: 20190731
  8. METOJECT [Concomitant]
     Active Substance: METHOTREXATE SODIUM
     Dosage: 1 PRE-FILLED SYRINGE EVERY 7 DAYS
     Route: 065
     Dates: start: 20190731
  9. DILIBAN [Concomitant]
     Active Substance: ACETAMINOPHEN\TRAMADOL HYDROCHLORIDE
     Route: 048
     Dates: start: 20190528

REACTIONS (2)
  - Diabetic foot infection [Recovered/Resolved]
  - Toe amputation [Recovered/Resolved]

NARRATIVE: CASE EVENT DATE: 20190730
